FAERS Safety Report 14383345 (Version 2)
Quarter: 2018Q1

REPORT INFORMATION
  Report Type: Spontaneous
  Country: US (occurrence: US)
  Receive Date: 20180115
  Receipt Date: 20180123
  Transmission Date: 20180509
  Serious: Yes (Death, Hospitalization, Other)
  Sender: FDA-Public Use
  Company Number: US-BEH-2018086660

PATIENT
  Age: 63 Year
  Sex: Female
  Weight: 58.96 kg

DRUGS (8)
  1. ZEMAIRA [Suspect]
     Active Substance: .ALPHA.1-PROTEINASE INHIBITOR HUMAN
     Indication: EMPHYSEMA
     Dosage: 60 KG/ML WEEKLY
     Route: 042
     Dates: start: 20091211
  2. ZEMAIRA [Suspect]
     Active Substance: .ALPHA.1-PROTEINASE INHIBITOR HUMAN
     Indication: ALPHA-1 ANTI-TRYPSIN DEFICIENCY
     Dosage: UNK
     Route: 042
  3. XIFAXAN [Concomitant]
     Active Substance: RIFAXIMIN
  4. LASIX [Concomitant]
     Active Substance: FUROSEMIDE
  5. VITAMIN A                          /00056001/ [Concomitant]
     Active Substance: RETINOL
  6. OXYGEN. [Concomitant]
     Active Substance: OXYGEN
  7. ZEMAIRA [Suspect]
     Active Substance: .ALPHA.1-PROTEINASE INHIBITOR HUMAN
     Dosage: UNK
     Route: 042
     Dates: start: 20090601
  8. SPIRONOLACTON [Concomitant]
     Active Substance: SPIRONOLACTONE

REACTIONS (3)
  - Lung disorder [Unknown]
  - Hepatic failure [Fatal]
  - Liver disorder [Unknown]
